FAERS Safety Report 20610022 (Version 1)
Quarter: 2022Q1

REPORT INFORMATION
  Report Type: Spontaneous
  Country: FR (occurrence: FR)
  Receive Date: 20220318
  Receipt Date: 20220318
  Transmission Date: 20220424
  Serious: Yes (Congenital Anomaly, Other)
  Sender: FDA-Public Use
  Company Number: FR-ABBVIE-22K-056-4321449-00

PATIENT
  Sex: Male

DRUGS (2)
  1. VALPROATE SODIUM [Suspect]
     Active Substance: VALPROATE SODIUM
     Indication: Maternal exposure timing unspecified
     Route: 064
  2. FOLDINE [Concomitant]
     Indication: Maternal exposure timing unspecified

REACTIONS (24)
  - Foetal anticonvulsant syndrome [Unknown]
  - Gross motor delay [Unknown]
  - Intellectual disability [Unknown]
  - Brachycephaly [Unknown]
  - Plagiocephaly [Unknown]
  - Dysmorphism [Unknown]
  - Heart disease congenital [Unknown]
  - Atrial septal defect [Unknown]
  - Language disorder [Unknown]
  - Behaviour disorder [Unknown]
  - Social (pragmatic) communication disorder [Unknown]
  - Learning disorder [Unknown]
  - Dyspraxia [Unknown]
  - Fine motor delay [Unknown]
  - Attention deficit hyperactivity disorder [Unknown]
  - Sleep disorder [Unknown]
  - Speech disorder developmental [Unknown]
  - Fine motor skill dysfunction [Unknown]
  - Myoclonic epilepsy [Unknown]
  - Visual impairment [Unknown]
  - Ear, nose and throat disorder [Unknown]
  - Myopia [Unknown]
  - Personal relationship issue [Unknown]
  - Foetal exposure during pregnancy [Unknown]

NARRATIVE: CASE EVENT DATE: 19980804
